FAERS Safety Report 8189465-X (Version None)
Quarter: 2012Q1

REPORT INFORMATION
  Report Type: 
  Country: None (occurrence: None)
  Receive Date: 20120307
  Receipt Date: 20120301
  Transmission Date: 20120608
  Serious: No
  Sender: FDA-Public Use
  Company Number: US-PFIZER INC-2012055966

PATIENT
  Sex: Female
  Weight: 113.38 kg

DRUGS (5)
  1. ALAVERT [Suspect]
     Indication: SEASONAL ALLERGY
  2. ALAVERT [Suspect]
     Indication: ALLERGY TO PLANTS
  3. XANAX [Concomitant]
     Dosage: UNK
  4. ALAVERT [Suspect]
     Indication: ALLERGY TO ANIMAL
     Dosage: 10 MG, 1X/DAY
     Route: 048
     Dates: start: 20120201
  5. ALAVERT [Suspect]
     Indication: HOUSE DUST ALLERGY

REACTIONS (8)
  - EAR PRURITUS [None]
  - PRURITUS GENERALISED [None]
  - FATIGUE [None]
  - THROAT IRRITATION [None]
  - DRY MOUTH [None]
  - DRUG INEFFECTIVE [None]
  - EYE PRURITUS [None]
  - LACRIMATION INCREASED [None]
